FAERS Safety Report 9580604 (Version 1)
Quarter: 2013Q3

REPORT INFORMATION
  Report Type: Spontaneous
  Country: US (occurrence: None)
  Receive Date: 20130916
  Receipt Date: 20130916
  Transmission Date: 20140515
  Serious: Yes (Other)
  Sender: FDA-Public Use
  Company Number: JPI-P-030381

PATIENT
  Age: 43 Year
  Sex: Female
  Weight: 60.78 kg

DRUGS (6)
  1. XYREM [Suspect]
     Indication: CATAPLEXY
     Dosage: 4.5 GM (2.25 GM, 2 IN 1 D),ORAL
     Route: 048
     Dates: start: 20120712
  2. CLONAZEPAM [Suspect]
     Indication: ANXIETY
     Dates: start: 2011
  3. BUPROPION HYDROCHLORIDE [Suspect]
     Indication: DEPRESSION
     Route: 048
     Dates: start: 2011, end: 20130228
  4. VENLAFAXINE HYDROCHLORIDE [Suspect]
     Indication: DEPRESSION
     Route: 048
     Dates: start: 2011, end: 20130228
  5. FEXOFENADINE HYDROCHLORIDE [Concomitant]
  6. MULTIVITAMINS [Concomitant]

REACTIONS (5)
  - Weight decreased [None]
  - Decreased appetite [None]
  - Anxiety [None]
  - Retching [None]
  - Tremor [None]
